FAERS Safety Report 10190808 (Version 1)
Quarter: 2014Q2

REPORT INFORMATION
  Report Type: Spontaneous
  Country: JP (occurrence: JP)
  Receive Date: 20140523
  Receipt Date: 20140523
  Transmission Date: 20141212
  Serious: Yes (Other)
  Sender: FDA-Public Use
  Company Number: PHHY2014JP061182

PATIENT
  Sex: Female

DRUGS (1)
  1. FAMVIR [Suspect]
     Dosage: 1500 MG, DAILY
     Route: 048
     Dates: start: 2014

REACTIONS (2)
  - Renal failure acute [Recovering/Resolving]
  - Blood creatinine increased [Unknown]
